FAERS Safety Report 9852231 (Version 1)
Quarter: 2014Q1

REPORT INFORMATION
  Report Type: Spontaneous
  Country: CH (occurrence: CH)
  Receive Date: 20140129
  Receipt Date: 20140129
  Transmission Date: 20141002
  Serious: Yes (Hospitalization)
  Sender: FDA-Public Use
  Company Number: CH-MYLANLABS-2014S1001387

PATIENT
  Age: 26 Year
  Sex: Female

DRUGS (5)
  1. QUETIAPINE [Suspect]
     Indication: OVERDOSE
     Dosage: 10 XR TABLETS, 3G
     Route: 048
  2. LORAZEPAM [Suspect]
     Route: 048
  3. VENLAFAXINE [Suspect]
     Route: 048
  4. LEVOMEPROMAZINE [Suspect]
     Route: 048
  5. DIPYRONE [Suspect]
     Route: 048

REACTIONS (5)
  - Overdose [Recovering/Resolving]
  - Bezoar [Recovering/Resolving]
  - Somnolence [Recovering/Resolving]
  - Tachycardia [Recovering/Resolving]
  - Disturbance in attention [Recovering/Resolving]
